FAERS Safety Report 25924762 (Version 1)
Quarter: 2025Q4

REPORT INFORMATION
  Report Type: Report from Study
  Country: GB (occurrence: GB)
  Receive Date: 20251015
  Receipt Date: 20251015
  Transmission Date: 20260118
  Serious: Yes (Disabling, Other)
  Sender: NOVARTIS
  Company Number: GB-002147023-NVSC2025GB025434

PATIENT
  Age: 53 Year
  Sex: Female

DRUGS (1)
  1. SIPONIMOD [Suspect]
     Active Substance: SIPONIMOD
     Indication: Secondary progressive multiple sclerosis
     Dosage: 2 MG, QD
     Route: 048
     Dates: start: 20250113

REACTIONS (7)
  - Decubitus ulcer [Not Recovered/Not Resolved]
  - Biliary colic [Not Recovered/Not Resolved]
  - Fatigue [Not Recovered/Not Resolved]
  - Hypoaesthesia [Not Recovered/Not Resolved]
  - Blood pressure systolic increased [Not Recovered/Not Resolved]
  - Urinary tract infection [Not Recovered/Not Resolved]
  - Chromaturia [Unknown]

NARRATIVE: CASE EVENT DATE: 20250113
